FAERS Safety Report 4615485-5 (Version None)
Quarter: 2005Q1

REPORT INFORMATION
  Report Type: 
  Country: None (occurrence: None)
  Receive Date: 20050317
  Receipt Date: 20050304
  Transmission Date: 20050727
  Serious: Yes (Other)
  Sender: FDA-Public Use
  Company Number: 033-0981-M0100538

PATIENT
  Age: 62 Year
  Sex: Male

DRUGS (2)
  1. ATORVASTATIN CALCIUM [Suspect]
     Indication: ILL-DEFINED DISORDER
  2. AMLODIPINE [Suspect]
     Indication: ILL-DEFINED DISORDER
     Dosage: 5 MG

REACTIONS (5)
  - ANGINA PECTORIS [None]
  - DRUG INTERACTION [None]
  - HEPATITIS [None]
  - INFLUENZA LIKE ILLNESS [None]
  - MYALGIA [None]
